FAERS Safety Report 6503142-X (Version None)
Quarter: 2009Q4

REPORT INFORMATION
  Report Type: 
  Country: None (occurrence: None)
  Receive Date: 20091217
  Receipt Date: 20091202
  Transmission Date: 20100525
  Serious: Yes (Hospitalization, Other)
  Sender: FDA-Public Use
  Company Number: US-TYCO HEALTHCARE/MALLINCKRODT-T200901375

PATIENT
  Sex: Male

DRUGS (14)
  1. OPTIMARK [Suspect]
     Indication: NUCLEAR MAGNETIC RESONANCE IMAGING
     Dosage: UNK
     Route: 042
     Dates: start: 20031202, end: 20031202
  2. OPTIMARK [Suspect]
     Indication: ANGIOGRAM
  3. MAGNEVIST [Suspect]
     Dosage: UNK
     Route: 042
  4. OMNISCAN [Suspect]
     Indication: NUCLEAR MAGNETIC RESONANCE IMAGING
     Dosage: UNK
     Route: 042
     Dates: start: 20041215, end: 20041215
  5. MULTIHANCE [Suspect]
     Dosage: UNK
     Route: 042
  6. PROHANCE [Suspect]
     Dosage: UNK
     Route: 042
  7. GADOLINIUM [Suspect]
     Indication: NUCLEAR MAGNETIC RESONANCE IMAGING
     Dosage: UNK
     Route: 042
     Dates: start: 20030609, end: 20030609
  8. GADOLINIUM [Suspect]
     Indication: ANGIOGRAM
     Dosage: UNK
     Route: 042
     Dates: start: 20050112, end: 20050112
  9. GADOLINIUM [Suspect]
     Dosage: UNK
     Route: 042
     Dates: start: 20050308, end: 20050308
  10. NORVASC [Concomitant]
  11. ISOSORBIDE [Concomitant]
  12. CARDURA                            /00639301/ [Concomitant]
  13. ASPIRIN [Concomitant]
  14. IRON [Concomitant]

REACTIONS (15)
  - ATRIOVENTRICULAR BLOCK SECOND DEGREE [None]
  - CARDIAC FAILURE CONGESTIVE [None]
  - CAROTID ARTERY STENOSIS [None]
  - CELLULITIS [None]
  - CORONARY ARTERY DISEASE [None]
  - NEPHROGENIC SYSTEMIC FIBROSIS [None]
  - NEUROPATHY PERIPHERAL [None]
  - OFF LABEL USE [None]
  - OSTEOARTHRITIS [None]
  - OSTEOMYELITIS [None]
  - PULMONARY HYPERTENSION [None]
  - PULMONARY OEDEMA [None]
  - SKIN ULCER [None]
  - SPINAL COLUMN STENOSIS [None]
  - TOE AMPUTATION [None]
